FAERS Safety Report 6849238-4 (Version None)
Quarter: 2010Q3

REPORT INFORMATION
  Report Type: 
  Country: None (occurrence: None)
  Receive Date: 20100716
  Receipt Date: 20071213
  Transmission Date: 20110219
  Serious: No
  Sender: FDA-Public Use
  Company Number: US-PFIZER INC-2007082229

PATIENT
  Sex: Female
  Weight: 95 kg

DRUGS (9)
  1. CHANTIX [Suspect]
     Indication: SMOKING CESSATION THERAPY
     Route: 048
     Dates: start: 20070923
  2. ABILIFY [Concomitant]
  3. LITHIUM CARBONATE [Concomitant]
  4. ALBUTEROL [Concomitant]
  5. SEROQUEL [Concomitant]
  6. SYNTHROID [Concomitant]
  7. TRAZODONE HYDROCHLORIDE [Concomitant]
  8. METFORMIN HCL [Concomitant]
  9. MOTRIN [Concomitant]

REACTIONS (12)
  - ABNORMAL DREAMS [None]
  - ANXIETY [None]
  - ARTHRALGIA [None]
  - BONE PAIN [None]
  - DECREASED APPETITE [None]
  - DIZZINESS [None]
  - HOT FLUSH [None]
  - INSOMNIA [None]
  - NAUSEA [None]
  - NERVOUSNESS [None]
  - PRESYNCOPE [None]
  - TREMOR [None]
